FAERS Safety Report 19185224 (Version 1)
Quarter: 2021Q2

REPORT INFORMATION
  Report Type: Report from Study
  Country: ES (occurrence: ES)
  Receive Date: 20210427
  Receipt Date: 20210427
  Transmission Date: 20210717
  Serious: Yes (Other)
  Sender: FDA-Public Use
  Company Number: ES-GILEAD-2021-0526838

PATIENT
  Age: 51 Year
  Sex: Male

DRUGS (1)
  1. KTE?X19 [Suspect]
     Active Substance: BREXUCABTAGENE AUTOLEUCEL
     Indication: MANTLE CELL LYMPHOMA
     Dosage: UNK
     Route: 042
     Dates: start: 20201020, end: 20201020

REACTIONS (1)
  - Mantle cell lymphoma [Not Recovered/Not Resolved]
